FAERS Safety Report 25802215 (Version 1)
Quarter: 2025Q3

REPORT INFORMATION
  Report Type: Spontaneous
  Country: US (occurrence: None)
  Receive Date: 20250912
  Receipt Date: 20250912
  Transmission Date: 20251021
  Serious: Yes (Other)
  Sender: FDA-CTU
  Company Number: None

PATIENT
  Age: 82 Year
  Sex: Male
  Weight: 74.7 kg

DRUGS (14)
  1. XIIDRA [Suspect]
     Active Substance: LIFITEGRAST
     Indication: Dry eye
     Dosage: 1 DROP TWICE A DAY OPHTHAALMIC
     Route: 047
     Dates: start: 20240909, end: 20250730
  2. CARVEDILOL [Concomitant]
     Active Substance: CARVEDILOL
  3. ELIQUIS [Concomitant]
     Active Substance: APIXABAN
  4. SPIRONOLACTONE [Concomitant]
     Active Substance: SPIRONOLACTONE
  5. CARAFATE [Concomitant]
     Active Substance: SUCRALFATE
  6. Dicyclamine [Concomitant]
  7. ROSUVASTATIN [Concomitant]
     Active Substance: ROSUVASTATIN
  8. CLOPIDOGREL BISULFATE [Concomitant]
     Active Substance: CLOPIDOGREL BISULFATE
  9. POLYETHYLENE GLYCOL [Concomitant]
     Active Substance: POLYETHYLENE GLYCOL
  10. Citracel [Concomitant]
  11. MUCINEX [Concomitant]
     Active Substance: GUAIFENESIN
  12. ALLEGRA [Concomitant]
     Active Substance: FEXOFENADINE HYDROCHLORIDE
  13. VITAMINS [Concomitant]
     Active Substance: VITAMINS
  14. VITAMIN D3 [Concomitant]
     Active Substance: CHOLECALCIFEROL

REACTIONS (5)
  - Nasal dryness [None]
  - Musculoskeletal stiffness [None]
  - Rhinalgia [None]
  - Nasal oedema [None]
  - Drug ineffective [None]

NARRATIVE: CASE EVENT DATE: 20250601
